FAERS Safety Report 5947561-9 (Version None)
Quarter: 2008Q4

REPORT INFORMATION
  Report Type: 
  Country: None (occurrence: None)
  Receive Date: 20081110
  Receipt Date: 20081104
  Transmission Date: 20090506
  Serious: Yes (Other)
  Sender: FDA-Public Use
  Company Number: PHHO2008DE13227

PATIENT
  Sex: Female
  Weight: 90 kg

DRUGS (3)
  1. ZOLEDRONATE T29581+SOLINJ+BM [Suspect]
     Indication: BREAST CANCER
     Dosage: 4 MG, UNK
     Route: 042
     Dates: start: 20070510
  2. VITAMIN D [Concomitant]
     Dosage: UNK
     Dates: start: 20070510
  3. CALCIUM [Concomitant]
     Dosage: UNK
     Dates: start: 20070510

REACTIONS (1)
  - OSTEONECROSIS [None]
